FAERS Safety Report 19834126 (Version 1)
Quarter: 2021Q3

REPORT INFORMATION
  Report Type: Spontaneous
  Country: CN (occurrence: CN)
  Receive Date: 20210915
  Receipt Date: 20210915
  Transmission Date: 20211014
  Serious: Yes (Hospitalization, Other)
  Sender: FDA-Public Use
  Company Number: CN-LUPIN PHARMACEUTICALS INC.-2021-17114

PATIENT
  Age: 8 Year
  Sex: Female

DRUGS (5)
  1. AZITHROMYCIN ANHYDROUS. [Suspect]
     Active Substance: AZITHROMYCIN ANHYDROUS
     Indication: RHINITIS ALLERGIC
     Dosage: UNK
     Route: 048
  2. AZITHROMYCIN ANHYDROUS. [Suspect]
     Active Substance: AZITHROMYCIN ANHYDROUS
     Indication: PNEUMONIA
     Dosage: 10 MILLIGRAM/KILOGRAM, QD
     Route: 042
     Dates: start: 201906
  3. IBUPROFEN. [Concomitant]
     Active Substance: IBUPROFEN
     Indication: PNEUMONIA MYCOPLASMAL
     Dosage: 7 MILLIGRAM/KILOGRAM, QID
     Route: 065
     Dates: start: 201906
  4. AZITHROMYCIN ANHYDROUS. [Suspect]
     Active Substance: AZITHROMYCIN ANHYDROUS
     Indication: PNEUMONIA MYCOPLASMAL
     Dosage: 200 MILLIGRAM, QD
     Route: 065
     Dates: start: 201906
  5. IBUPROFEN. [Concomitant]
     Active Substance: IBUPROFEN
     Indication: PNEUMONIA

REACTIONS (1)
  - Erythema multiforme [Recovered/Resolved]

NARRATIVE: CASE EVENT DATE: 201906
